FAERS Safety Report 5976711-3 (Version None)
Quarter: 2008Q4

REPORT INFORMATION
  Report Type: 
  Country: None (occurrence: None)
  Receive Date: 20081128
  Receipt Date: 20081113
  Transmission Date: 20090506
  Serious: Yes (Death)
  Sender: FDA-Public Use
  Company Number: RENA-1000308

PATIENT
  Age: 53 Year
  Sex: Male

DRUGS (1)
  1. RENAGEL [Suspect]
     Indication: HYPERPHOSPHATAEMIA
     Dosage: 2.4 G, TID, ORAL
     Route: 048
     Dates: start: 20060621

REACTIONS (2)
  - HAEMODIALYSIS [None]
  - KIDNEY TRANSPLANT REJECTION [None]
